FAERS Safety Report 23675441 (Version 1)
Quarter: 2024Q1

REPORT INFORMATION
  Report Type: Report from Study
  Country: GB (occurrence: GB)
  Receive Date: 20240327
  Receipt Date: 20240327
  Transmission Date: 20240410
  Serious: Yes (Other)
  Sender: FDA-Public Use
  Company Number: GB-SANDOZ-SDZ2024GB028072

PATIENT
  Sex: Female

DRUGS (1)
  1. HYRIMOZ [Suspect]
     Active Substance: ADALIMUMAB-ADAZ
     Indication: Rheumatoid arthritis
     Dosage: 40 MG, Q2W(EOW)
     Route: 058

REACTIONS (7)
  - Rheumatoid arthritis [Unknown]
  - Feeling jittery [Unknown]
  - Restlessness [Unknown]
  - Muscle twitching [Unknown]
  - Heart rate increased [Unknown]
  - Insomnia [Unknown]
  - Urticaria [Unknown]
